FAERS Safety Report 8328991-7 (Version None)
Quarter: 2012Q2

REPORT INFORMATION
  Report Type: 
  Country: None (occurrence: None)
  Receive Date: 20120502
  Receipt Date: 20120423
  Transmission Date: 20120825
  Serious: Yes (Hospitalization)
  Sender: FDA-Public Use
  Company Number: JP-BAYER-2012-039606

PATIENT
  Age: 82 Year
  Sex: Male

DRUGS (1)
  1. ASPIRIN [Suspect]
     Indication: ANGINA PECTORIS
     Dosage: 100 MG, QD
     Route: 048

REACTIONS (3)
  - PLATELET COUNT DECREASED [None]
  - DYSPNOEA [None]
  - EOSINOPHIL COUNT INCREASED [None]
